FAERS Safety Report 8139320-6 (Version None)
Quarter: 2012Q1

REPORT INFORMATION
  Report Type: 
  Country: None (occurrence: None)
  Receive Date: 20120215
  Receipt Date: 20120209
  Transmission Date: 20120608
  Serious: Yes (Other)
  Sender: FDA-Public Use
  Company Number: US-PFIZER INC-2012036945

PATIENT
  Sex: Male
  Weight: 104 kg

DRUGS (12)
  1. NEXIUM [Suspect]
     Indication: GASTROOESOPHAGEAL REFLUX DISEASE
     Dosage: 40 MG, DAILY
  2. BUPROPION [Concomitant]
     Indication: DEPRESSION
     Dosage: 150 MG
  3. COZAAR [Concomitant]
     Indication: BLOOD PRESSURE ABNORMAL
     Dosage: 100 MG, DAILY
  4. SINGULAIR [Concomitant]
     Indication: ASTHMA
     Dosage: 10 MG, DAILY
  5. PRISTIQ [Suspect]
     Indication: MAJOR DEPRESSION
     Dosage: 50 MG, DAILY
     Dates: start: 20100101
  6. OMEPRAZOLE [Suspect]
     Indication: GASTROOESOPHAGEAL REFLUX DISEASE
     Dosage: 60 MG, 2X/DAY
     Route: 048
  7. TESSALON [Suspect]
     Dosage: UNK
  8. CIPROFLOXACIN HYDROCHLORIDE [Suspect]
     Indication: COUGH
     Dosage: 500 MG, DAILY
  9. AUGMENTIN '125' [Suspect]
     Indication: COUGH
     Dosage: UNK
  10. LAMISIL [Concomitant]
     Indication: TINEA PEDIS
     Dosage: 150 MG
  11. AZITHROMYCIN [Suspect]
     Indication: COUGH
     Dosage: 500 MG, DAILY
     Dates: start: 20120127
  12. RESTORIL [Concomitant]
     Dosage: 30 MG

REACTIONS (4)
  - COUGH [None]
  - DRUG INEFFECTIVE [None]
  - GASTROOESOPHAGEAL REFLUX DISEASE [None]
  - NASOPHARYNGITIS [None]
